FAERS Safety Report 4294642-4 (Version None)
Quarter: 2004Q1

REPORT INFORMATION
  Report Type: 
  Country: None (occurrence: None)
  Receive Date: 20040211
  Receipt Date: 20040128
  Transmission Date: 20041129
  Serious: Yes (Death, Hospitalization)
  Sender: FDA-Public Use
  Company Number: FR_040103422

PATIENT
  Age: 59 Year
  Sex: Male
  Weight: 86 kg

DRUGS (13)
  1. XIGRIS [Suspect]
     Indication: MULTI-ORGAN FAILURE
     Dosage: 24 UG/KG/HR/OTHER
     Dates: start: 20040113, end: 20040113
  2. VANCOMYCIN [Concomitant]
  3. NORADRENALINE [Concomitant]
  4. ADRENALINE [Concomitant]
  5. GENTAMICIN [Concomitant]
  6. CLAVENTIN [Concomitant]
  7. HYDROCORTISONE [Concomitant]
  8. MIDAZOLAM HCL [Concomitant]
  9. SUFENTA [Concomitant]
  10. VECTRINE (ERODOSTEINE) [Concomitant]
  11. EUPANTOL (PANTOPRAZOLE) [Concomitant]
  12. XYLOCARD (LIDOCAINE HYDROCHLORIDE) [Concomitant]
  13. CORDARONE [Concomitant]

REACTIONS (7)
  - ACTIVATED PARTIAL THROMBOPLASTIN TIME PROLONGED [None]
  - CATHETER SITE HAEMORRHAGE [None]
  - EPISTAXIS [None]
  - HAEMATURIA [None]
  - MELAENA [None]
  - MULTI-ORGAN FAILURE [None]
  - PLATELET COUNT DECREASED [None]
